FAERS Safety Report 17324544 (Version 1)
Quarter: 2020Q1

REPORT INFORMATION
  Report Type: Spontaneous
  Country: US (occurrence: US)
  Receive Date: 20200124
  Receipt Date: 20200124
  Transmission Date: 20200409
  Serious: Yes (Other)
  Sender: FDA-Public Use
  Company Number: None

PATIENT
  Age: 70 Year
  Sex: Male
  Weight: 80.1 kg

DRUGS (7)
  1. MELATONIN [Concomitant]
     Active Substance: MELATONIN
  2. SIMVASTATIN. [Concomitant]
     Active Substance: SIMVASTATIN
  3. SIMVASTATIN. [Concomitant]
     Active Substance: SIMVASTATIN
  4. BUPROOPION HYDROCLORIDE XL 150MG [Suspect]
     Active Substance: BUPROPION HYDROCHLORIDE
     Indication: DEPRESSION
     Dosage: ?          QUANTITY:2 TABLET(S);?
     Route: 048
     Dates: start: 20200102
  5. FINASTERIDE. [Concomitant]
     Active Substance: FINASTERIDE
  6. FISH OIL [Concomitant]
     Active Substance: FISH OIL
  7. TEA [Concomitant]
     Active Substance: TEA LEAF

REACTIONS (1)
  - Constipation [None]

NARRATIVE: CASE EVENT DATE: 20200106
